FAERS Safety Report 10043497 (Version 1)
Quarter: 2014Q1

REPORT INFORMATION
  Report Type: Spontaneous
  Country: US (occurrence: US)
  Receive Date: 20140328
  Receipt Date: 20140328
  Transmission Date: 20141002
  Serious: No
  Sender: FDA-Public Use
  Company Number: US-PFIZER INC-2014086557

PATIENT
  Age: 88 Year
  Sex: Female

DRUGS (3)
  1. GABAPENTIN [Suspect]
     Indication: PAIN
     Dosage: UNK
  2. GABAPENTIN [Suspect]
     Indication: INJURY
  3. GABAPENTIN [Suspect]
     Indication: SPONDYLITIC MYELOPATHY

REACTIONS (1)
  - Somnolence [Unknown]
